FAERS Safety Report 21388830 (Version 1)
Quarter: 2022Q3

REPORT INFORMATION
  Report Type: Spontaneous
  Country: US (occurrence: None)
  Receive Date: 20220927
  Receipt Date: 20220927
  Transmission Date: 20221026
  Serious: Yes (Hospitalization)
  Sender: FDA-Public Use
  Company Number: None

PATIENT
  Age: 71 Year
  Sex: Male
  Weight: 102.92 kg

DRUGS (29)
  1. ETOPOSIDE [Suspect]
     Active Substance: ETOPOSIDE
     Indication: Diffuse large B-cell lymphoma
     Dosage: FREQUENCY : DAILY;?
     Route: 048
     Dates: start: 202209
  2. ALDACTONE [Concomitant]
     Active Substance: SPIRONOLACTONE
  3. ALLOPURINOL [Concomitant]
     Active Substance: ALLOPURINOL
  4. AMLODIPINE [Concomitant]
     Active Substance: AMLODIPINE BESYLATE
  5. ASPIRIN [Concomitant]
     Active Substance: ASPIRIN
  6. ATORVASTATIN [Concomitant]
     Active Substance: ATORVASTATIN
  7. COREG [Concomitant]
     Active Substance: CARVEDILOL
  8. CULTURELLE [Concomitant]
     Active Substance: LACTOBACILLUS RHAMNOSUS
  9. DICYCLOMINE [Concomitant]
     Active Substance: DICYCLOMINE HYDROCHLORIDE
  10. DOXAZOSIN [Concomitant]
     Active Substance: DOXAZOSIN MESYLATE
  11. FERROUS SULFATE [Concomitant]
     Active Substance: FERROUS SULFATE
  12. FUROSEMIDE [Concomitant]
     Active Substance: FUROSEMIDE
  13. HUMALOG-ACETAMINOPHEN [Concomitant]
  14. LANTUS [Concomitant]
     Active Substance: INSULIN GLARGINE
  15. LASIX [Concomitant]
     Active Substance: FUROSEMIDE
  16. LOPERAMIDE [Concomitant]
     Active Substance: LOPERAMIDE
  17. VITAMINS [Concomitant]
     Active Substance: VITAMINS
  18. MYCOPHENOLIC ACID [Concomitant]
     Active Substance: MYCOPHENOLIC ACID
  19. SODIUM CHLORIDE [Concomitant]
     Active Substance: SODIUM CHLORIDE
  20. NALOXONE [Concomitant]
     Active Substance: NALOXONE
  21. OMEPRAZOLE [Concomitant]
     Active Substance: OMEPRAZOLE
  22. ONDANSETRON [Concomitant]
     Active Substance: ONDANSETRON
  23. PREDNISONE [Concomitant]
     Active Substance: PREDNISONE
  24. PROCRIT [Concomitant]
     Active Substance: ERYTHROPOIETIN
  25. SELENIUM [Concomitant]
     Active Substance: SELENIUM
  26. VITAMIN B12 [Concomitant]
     Active Substance: CYANOCOBALAMIN
  27. VITAMIN D3 [Concomitant]
     Active Substance: CHOLECALCIFEROL
  28. XIFAXAN [Concomitant]
     Active Substance: RIFAXIMIN
  29. ZINC [Concomitant]
     Active Substance: ZINC

REACTIONS (1)
  - Hospitalisation [None]

NARRATIVE: CASE EVENT DATE: 20220924
